FAERS Safety Report 23999568 (Version 1)
Quarter: 2024Q2

REPORT INFORMATION
  Report Type: Spontaneous
  Country: SG (occurrence: SG)
  Receive Date: 20240621
  Receipt Date: 20240621
  Transmission Date: 20240715
  Serious: Yes (Death, Other)
  Sender: FDA-Public Use
  Company Number: SG-AMGEN-SGPSP2024117574

PATIENT
  Age: 68 Year
  Sex: Male

DRUGS (10)
  1. XGEVA [Suspect]
     Active Substance: DENOSUMAB
     Indication: Extramammary Paget^s disease
     Dosage: 120 MILLIGRAM (ADMINISTERED ON DAYS 1, 8 AND 15)
     Route: 058
  2. XGEVA [Suspect]
     Active Substance: DENOSUMAB
     Dosage: 120 MILLIGRAM, Q4WK
     Route: 058
  3. PACLITAXEL [Concomitant]
     Active Substance: PACLITAXEL
     Indication: Extramammary Paget^s disease
     Dosage: 80 MILLIGRAM/SQ. METER
     Route: 042
  4. PACLITAXEL [Concomitant]
     Active Substance: PACLITAXEL
     Dosage: 175 MILLIGRAM/SQ. METER, Q4WK
     Route: 042
  5. HERCEPTIN [Concomitant]
     Active Substance: TRASTUZUMAB
     Indication: Extramammary Paget^s disease
     Dosage: 8 MILLIGRAM/KILOGRAM
     Route: 042
  6. HERCEPTIN [Concomitant]
     Active Substance: TRASTUZUMAB
     Dosage: 600 MILLIGRAM
     Route: 058
  7. BICALUTAMIDE [Concomitant]
     Active Substance: BICALUTAMIDE
     Indication: Extramammary Paget^s disease
     Dosage: 150 MILLIGRAM, QD
     Route: 048
  8. CAPECITABINE [Concomitant]
     Active Substance: CAPECITABINE
     Indication: Extramammary Paget^s disease
     Dosage: 1000 MILLIGRAM, BID
     Route: 065
  9. LAPATINIB [Concomitant]
     Active Substance: LAPATINIB
     Indication: Extramammary Paget^s disease
     Dosage: 1250 MILLIGRAM, QD
     Route: 065
  10. ADO-TRASTUZUMAB EMTANSINE [Concomitant]
     Active Substance: ADO-TRASTUZUMAB EMTANSINE
     Indication: Extramammary Paget^s disease
     Dosage: UNK
     Route: 065

REACTIONS (6)
  - Death [Fatal]
  - Extramammary Paget^s disease [Unknown]
  - Pneumonia [Unknown]
  - Blood lactate dehydrogenase increased [Unknown]
  - Serum ferritin increased [Unknown]
  - Off label use [Unknown]
